FAERS Safety Report 6427554-8 (Version None)
Quarter: 2009Q4

REPORT INFORMATION
  Report Type: 
  Country: None (occurrence: None)
  Receive Date: 20091104
  Receipt Date: 20090929
  Transmission Date: 20100525
  Serious: Yes (Other)
  Sender: FDA-Public Use
  Company Number: BR-PFIZER INC-2009275596

PATIENT
  Age: 42 Year
  Sex: Female
  Weight: 72 kg

DRUGS (6)
  1. LYRICA [Suspect]
     Indication: FIBROMYALGIA
     Dosage: 75 MG, UNK
     Route: 048
     Dates: start: 20090201
  2. LYRICA [Suspect]
     Dosage: 150 MG, 1X/DAY
     Route: 048
  3. LYRICA [Suspect]
     Dosage: 225 MG, UNK
     Route: 048
  4. LYRICA [Suspect]
     Dosage: 150 MG, 2X/DAY
     Route: 048
  5. CYMBALTA [Suspect]
     Dosage: UNK
     Dates: start: 20090201, end: 20090801
  6. ATENOLOL AND CHLORTHALIDONE [Concomitant]
     Indication: HYPERTENSION
     Dosage: UNK
     Dates: start: 20060101

REACTIONS (10)
  - ARTHRALGIA [None]
  - DEFORMITY [None]
  - DRUG INEFFECTIVE [None]
  - FLUID RETENTION [None]
  - OEDEMA [None]
  - OEDEMA PERIPHERAL [None]
  - PAIN [None]
  - PEAU D'ORANGE [None]
  - SOMNOLENCE [None]
  - WEIGHT INCREASED [None]
